FAERS Safety Report 7520483-8 (Version None)
Quarter: 2011Q2

REPORT INFORMATION
  Report Type: 
  Country: None (occurrence: None)
  Receive Date: 20110602
  Receipt Date: 20110519
  Transmission Date: 20111010
  Serious: Yes (Other)
  Sender: FDA-Public Use
  Company Number: CA-JNJFOC-20110510389

PATIENT
  Sex: Female
  Weight: 51.71 kg

DRUGS (6)
  1. REMICADE [Suspect]
     Indication: CROHN'S DISEASE
     Route: 042
  2. REMICADE [Suspect]
     Route: 042
     Dates: start: 20101217
  3. SOLU-CORTEF [Concomitant]
     Indication: PREMEDICATION
     Route: 042
  4. LAXATIVE [Concomitant]
  5. BENADRYL [Concomitant]
     Indication: PREMEDICATION
     Route: 042
  6. REMICADE [Suspect]
     Dosage: 5TH INFUSION
     Route: 042
     Dates: start: 20110519, end: 20110519

REACTIONS (8)
  - DYSPNOEA [None]
  - ERYTHEMA [None]
  - FATIGUE [None]
  - OXYGEN SATURATION DECREASED [None]
  - INFUSION RELATED REACTION [None]
  - FLUSHING [None]
  - ABDOMINAL PAIN [None]
  - HEADACHE [None]
